FAERS Safety Report 4975064-7 (Version None)
Quarter: 2006Q2

REPORT INFORMATION
  Report Type: 
  Country: None (occurrence: None)
  Receive Date: 20060414
  Receipt Date: 20060414
  Transmission Date: 20061013
  Serious: Yes (Life-Threatening, Hospitalization)
  Sender: FDA-Public Use
  Company Number: None

PATIENT
  Age: 18 Year
  Sex: Female

DRUGS (1)
  1. ROGAINE (FOR WOMEN) [Suspect]
     Indication: ALOPECIA
     Dosage: QUARTER SIZE AMOUNT TWICE DAILY TOP
     Route: 061
     Dates: start: 20060101, end: 20060228

REACTIONS (3)
  - EPISTAXIS [None]
  - FATIGUE [None]
  - THROMBOCYTOPENIA [None]
